FAERS Safety Report 10089745 (Version 1)
Quarter: 2014Q2

REPORT INFORMATION
  Report Type: Spontaneous
  Country: US (occurrence: US)
  Receive Date: 20140421
  Receipt Date: 20140421
  Transmission Date: 20141212
  Serious: Yes (Hospitalization, Other)
  Sender: FDA-Public Use
  Company Number: US-PFIZER INC-2014109220

PATIENT
  Age: 65 Year
  Sex: Female
  Weight: 77.1 kg

DRUGS (1)
  1. PREMPRO [Suspect]
     Indication: HOT FLUSH
     Dosage: UNK
     Dates: start: 2011

REACTIONS (5)
  - Cerebrovascular accident [Unknown]
  - Gait disturbance [Unknown]
  - Monoparesis [Unknown]
  - Visual impairment [Unknown]
  - Renal disorder [Unknown]
